FAERS Safety Report 25022093 (Version 1)
Quarter: 2025Q1

REPORT INFORMATION
  Report Type: Spontaneous
  Country: DE (occurrence: DE)
  Receive Date: 20250228
  Receipt Date: 20250228
  Transmission Date: 20250409
  Serious: Yes (Other)
  Sender: NOVO NORDISK
  Company Number: DE-NOVOPROD-1373217

PATIENT
  Sex: Male

DRUGS (2)
  1. SOGROYA [Suspect]
     Active Substance: SOMAPACITAN-BECO
     Indication: Product used for unknown indication
  2. SOGROYA [Suspect]
     Active Substance: SOMAPACITAN-BECO

REACTIONS (3)
  - Pituitary gland operation [Unknown]
  - Blood glucose increased [Unknown]
  - Lipid metabolism disorder [Unknown]
